FAERS Safety Report 19213061 (Version 2)
Quarter: 2021Q3

REPORT INFORMATION
  Report Type: Spontaneous
  Country: CA (occurrence: CA)
  Receive Date: 20210504
  Receipt Date: 20210907
  Transmission Date: 20211014
  Serious: Yes (Other)
  Sender: FDA-Public Use
  Company Number: CA-JNJFOC-20210457701

PATIENT
  Age: 42 Year
  Sex: Female

DRUGS (4)
  1. PROPRANOLOL [Suspect]
     Active Substance: PROPRANOLOL HYDROCHLORIDE
     Indication: MIGRAINE
     Route: 065
  2. AMITRIPTYLINE [Concomitant]
     Active Substance: AMITRIPTYLINE
     Indication: PRODUCT USED FOR UNKNOWN INDICATION
     Dosage: 122.0 DAYS
     Route: 065
  3. VERAPAMIL [Suspect]
     Active Substance: VERAPAMIL HYDROCHLORIDE
     Indication: MIGRAINE
     Route: 065
  4. TOPAMAX [Suspect]
     Active Substance: TOPIRAMATE
     Indication: MIGRAINE
     Dosage: 92.0 DAYS
     Route: 065

REACTIONS (14)
  - Facial paralysis [Unknown]
  - Neck deformity [Unknown]
  - Depression [Unknown]
  - Cognitive disorder [Unknown]
  - Poor quality sleep [Unknown]
  - Vomiting [Unknown]
  - Fatigue [Unknown]
  - Drug intolerance [Unknown]
  - Migraine [Unknown]
  - Pain [Unknown]
  - Tinnitus [Unknown]
  - Dizziness [Unknown]
  - Nausea [Unknown]
  - Product use in unapproved indication [Unknown]
